FAERS Safety Report 8609036-8 (Version None)
Quarter: 2012Q3

REPORT INFORMATION
  Report Type: 
  Country: None (occurrence: None)
  Receive Date: 20120821
  Receipt Date: 20120806
  Transmission Date: 20120928
  Serious: Yes (Life-Threatening, Congenital Anomaly)
  Sender: FDA-Public Use
  Company Number: ES-ROCHE-1102485

PATIENT
  Sex: Male
  Weight: 3.05 kg

DRUGS (3)
  1. ALTEPLASE [Suspect]
     Indication: THROMBOSIS
     Dosage: BOLUS, INDICATION REPORTED AS: RIGHT INTRA-ATRIAL THROMBUS
     Route: 040
  2. ALTEPLASE [Suspect]
     Route: 042
  3. PREDNISONE TAB [Suspect]
     Indication: PRODUCT USED FOR UNKNOWN INDICATION
     Dosage: ROUTE REPORTED AS TFP
     Route: 064

REACTIONS (6)
  - PULMONARY HYPERTENSION [None]
  - APGAR SCORE LOW [None]
  - VESSEL PUNCTURE SITE HAEMATOMA [None]
  - CARDIAC FAILURE [None]
  - DUCTUS ARTERIOSUS PREMATURE CLOSURE [None]
  - DILATATION ATRIAL [None]
